FAERS Safety Report 16279349 (Version 2)
Quarter: 2019Q3

REPORT INFORMATION
  Report Type: Spontaneous
  Country: FR (occurrence: FR)
  Receive Date: 20190507
  Receipt Date: 20190703
  Transmission Date: 20191004
  Serious: Yes (Disabling, Other)
  Sender: FDA-Public Use
  Company Number: FR-PROVELL PHARMACEUTICALS-2066696

PATIENT
  Age: 69 Year
  Sex: Female

DRUGS (1)
  1. EUTHYROX [Suspect]
     Active Substance: LEVOTHYROXINE SODIUM
     Indication: THYROID DISORDER
     Dates: start: 201703, end: 2018

REACTIONS (20)
  - Asthenia [Recovering/Resolving]
  - C-reactive protein increased [Recovering/Resolving]
  - Loss of personal independence in daily activities [Recovering/Resolving]
  - Weight decreased [Recovering/Resolving]
  - Depression [Recovering/Resolving]
  - Speech disorder [Recovering/Resolving]
  - Anxiety [Recovering/Resolving]
  - Insomnia [Recovering/Resolving]
  - General physical health deterioration [Recovering/Resolving]
  - Sleep disorder [Recovering/Resolving]
  - Hypothyroidism [Recovering/Resolving]
  - Disability [Recovering/Resolving]
  - Bedridden [Recovering/Resolving]
  - Productive cough [Recovering/Resolving]
  - Fatigue [Recovering/Resolving]
  - Dysphonia [Recovering/Resolving]
  - Decreased appetite [Recovering/Resolving]
  - Hyperthyroidism [Recovering/Resolving]
  - Myalgia [Recovering/Resolving]
  - Stress [Recovering/Resolving]

NARRATIVE: CASE EVENT DATE: 2017
